FAERS Safety Report 20075914 (Version 12)
Quarter: 2023Q2

REPORT INFORMATION
  Report Type: Spontaneous
  Country: CA (occurrence: CA)
  Receive Date: 20211116
  Receipt Date: 20230608
  Transmission Date: 20230722
  Serious: Yes (Hospitalization)
  Sender: FDA-Public Use
  Company Number: CA-PFIZER INC-2019480639

PATIENT
  Age: 46 Year
  Sex: Female

DRUGS (12)
  1. IBRANCE [Suspect]
     Active Substance: PALBOCICLIB
     Dosage: DAILY FOR 21 DAYS
     Route: 048
     Dates: start: 20200307
  2. IBRANCE [Suspect]
     Active Substance: PALBOCICLIB
     Dosage: 21 DAYS ON, 7 DAYS OFF
     Route: 048
     Dates: start: 20211112
  3. IBRANCE [Suspect]
     Active Substance: PALBOCICLIB
     Dosage: 1X/DAY, FOR 21 DAYS ON, 7 DAYS OFF
     Route: 048
     Dates: start: 20230213
  4. LETROZOLE [Concomitant]
     Active Substance: LETROZOLE
     Dosage: 2.5, 1X/DAY
  5. OMEPRAZOLE [Concomitant]
     Active Substance: OMEPRAZOLE
     Dosage: UNK
  6. ACETAMINOPHEN\OXYCODONE HYDROCHLORIDE [Concomitant]
     Active Substance: ACETAMINOPHEN\OXYCODONE HYDROCHLORIDE
     Dosage: UNK
  7. PROTOPIC [Concomitant]
     Active Substance: TACROLIMUS
     Dosage: UNK
  8. TACROLIMUS [Concomitant]
     Active Substance: TACROLIMUS
     Dosage: UNK
  9. TRIAZOLAM [Concomitant]
     Active Substance: TRIAZOLAM
     Dosage: UNK
  10. XGEVA [Concomitant]
     Active Substance: DENOSUMAB
     Dosage: 120 MG/L ,7 ML - 1.7 ML SUBQ Q28DAYS
  11. GOSERELIN [Concomitant]
     Active Substance: GOSERELIN
     Dosage: 3.6 MG INJECTION Q28DAYS
  12. ZOPICLONE [Concomitant]
     Active Substance: ZOPICLONE
     Dosage: UNK

REACTIONS (8)
  - Vertigo [Unknown]
  - Tooth disorder [Recovered/Resolved]
  - Inner ear disorder [Unknown]
  - Toothache [Unknown]
  - Tooth fracture [Unknown]
  - Pain in jaw [Unknown]
  - Decreased immune responsiveness [Unknown]
  - Asthenia [Unknown]

NARRATIVE: CASE EVENT DATE: 20230101
